FAERS Safety Report 14587571 (Version 1)
Quarter: 2018Q1

REPORT INFORMATION
  Report Type: Report from Study
  Country: US (occurrence: US)
  Receive Date: 20180301
  Receipt Date: 20180301
  Transmission Date: 20180509
  Serious: Yes (Other)
  Sender: FDA-Public Use
  Company Number: US-BAYER-2018-034126

PATIENT
  Age: 67 Year
  Sex: Male

DRUGS (3)
  1. NEXAVAR [Suspect]
     Active Substance: SORAFENIB
     Indication: METASTASES TO BILIARY TRACT
  2. NEXAVAR [Suspect]
     Active Substance: SORAFENIB
     Indication: NEOPLASM MALIGNANT
     Dosage: 200 MG, BID
     Route: 048
     Dates: start: 20180116, end: 20180122
  3. NEXAVAR [Suspect]
     Active Substance: SORAFENIB
     Indication: METASTASES TO LIVER

REACTIONS (2)
  - Off label use [None]
  - Arrhythmia [None]

NARRATIVE: CASE EVENT DATE: 201801
